FAERS Safety Report 4774387-4 (Version None)
Quarter: 2005Q3

REPORT INFORMATION
  Report Type: 
  Country: None (occurrence: None)
  Receive Date: 20050921
  Receipt Date: 20050912
  Transmission Date: 20060218
  Serious: Yes (Hospitalization)
  Sender: FDA-Public Use
  Company Number: NL-BRISTOL-MYERS SQUIBB COMPANY-13108410

PATIENT
  Age: 57 Year
  Sex: Female

DRUGS (7)
  1. NEWACE-10 TABS [Suspect]
     Indication: HYPERTENSION
     Dates: start: 20050515, end: 20050905
  2. METFORMIN HCL [Concomitant]
     Dates: start: 20050101
  3. CARBASALATE CALCIUM [Concomitant]
     Dates: start: 20050101
  4. TRIAMTERENE AND HYDROCHLOROTHIAZIDE [Concomitant]
     Dosage: DOSAGE: 50/25 MG
     Dates: start: 20050101
  5. METOPROLOL SUCCINATE [Concomitant]
     Dates: start: 20050101
  6. SIMVASTATIN [Concomitant]
     Dates: start: 20050101
  7. ARIMIDEX [Concomitant]
     Dates: start: 20050101

REACTIONS (1)
  - HAEMOGLOBIN DECREASED [None]
